FAERS Safety Report 21030859 (Version 2)
Quarter: 2023Q2

REPORT INFORMATION
  Report Type: Spontaneous
  Country: US (occurrence: None)
  Receive Date: 20220701
  Receipt Date: 20230517
  Transmission Date: 20230722
  Serious: No
  Sender: FDA-Public Use
  Company Number: US-ROCHE-2904973

PATIENT
  Age: 66 Year
  Sex: Male
  Weight: 81.72 kg

DRUGS (18)
  1. ACTEMRA [Suspect]
     Active Substance: TOCILIZUMAB
     Indication: Rheumatoid arthritis
     Dosage: STRENGTH:162MG/0.9ML
     Route: 058
     Dates: start: 20210110
  2. ACTEMRA [Suspect]
     Active Substance: TOCILIZUMAB
  3. ACTEMRA [Suspect]
     Active Substance: TOCILIZUMAB
     Dosage: ACTPEN 162MG/0.9ML
     Route: 058
     Dates: start: 2020
  4. ACTEMRA [Suspect]
     Active Substance: TOCILIZUMAB
  5. AMOXICILLIN [Suspect]
     Active Substance: AMOXICILLIN
     Indication: Toothache
     Route: 065
     Dates: start: 20220426
  6. OFEV [Concomitant]
     Active Substance: NINTEDANIB
     Indication: Idiopathic pulmonary fibrosis
     Dates: start: 2020
  7. ISOSORBIDE [Concomitant]
     Active Substance: ISOSORBIDE
     Indication: Chest pain
     Route: 065
     Dates: start: 202002
  8. METOPROLOL SUCCINATE [Concomitant]
     Active Substance: METOPROLOL SUCCINATE
     Dates: start: 202002
  9. ROSUVASTATIN [Concomitant]
     Active Substance: ROSUVASTATIN
     Indication: Blood cholesterol increased
  10. AMLODIPINE [Concomitant]
     Active Substance: AMLODIPINE BESYLATE
     Dates: start: 2019
  11. METFORMIN [Concomitant]
     Active Substance: METFORMIN HYDROCHLORIDE
     Indication: Type 2 diabetes mellitus
  12. JANUVIA [Concomitant]
     Active Substance: SITAGLIPTIN PHOSPHATE
     Indication: Type 2 diabetes mellitus
  13. ASPIRIN [Concomitant]
     Active Substance: ASPIRIN
  14. RANOLAZINE [Concomitant]
     Active Substance: RANOLAZINE
  15. ENALAPRIL [Concomitant]
     Active Substance: ENALAPRIL
     Dates: start: 2021
  16. VITAMIN D3 [Concomitant]
     Active Substance: CHOLECALCIFEROL
  17. OXYGEN [Concomitant]
     Active Substance: OXYGEN
     Indication: Idiopathic pulmonary fibrosis
     Dosage: 2L/MIN
     Route: 045
  18. ORENCIA [Concomitant]
     Active Substance: ABATACEPT

REACTIONS (11)
  - Injection site reaction [Unknown]
  - Peripheral coldness [Unknown]
  - Injection site swelling [Unknown]
  - Injection site pruritus [Unknown]
  - Toothache [Unknown]
  - Rheumatoid arthritis [Recovered/Resolved]
  - Dizziness [Recovered/Resolved]
  - Injection site haemorrhage [Recovered/Resolved]
  - Urticaria [Not Recovered/Not Resolved]
  - Incontinence [Unknown]
  - Gingival recession [Unknown]

NARRATIVE: CASE EVENT DATE: 20210625
